FAERS Safety Report 6013207-7 (Version None)
Quarter: 2008Q4

REPORT INFORMATION
  Report Type: 
  Country: None (occurrence: None)
  Receive Date: 20081219
  Receipt Date: 20081209
  Transmission Date: 20090506
  Serious: Yes (Other)
  Sender: FDA-Public Use
  Company Number: SE-BAYER-200832576GPV

PATIENT
  Age: 28 Year
  Sex: Male

DRUGS (14)
  1. FLUDARA [Suspect]
     Indication: LYMPHATIC SYSTEM NEOPLASM
     Route: 042
     Dates: start: 20060123, end: 20060128
  2. MYLERAN [Suspect]
     Indication: LYMPHATIC SYSTEM NEOPLASM
     Route: 048
     Dates: start: 20060129, end: 20060131
  3. ATG-FRESENIUS [Suspect]
     Indication: LYMPHATIC SYSTEM NEOPLASM
     Route: 042
     Dates: start: 20060129, end: 20060201
  4. URSO FALK [Concomitant]
     Indication: DRUG USE FOR UNKNOWN INDICATION
  5. DIFLUCAN [Concomitant]
     Indication: DRUG USE FOR UNKNOWN INDICATION
  6. SANDIMMUNE [Concomitant]
     Indication: DRUG USE FOR UNKNOWN INDICATION
  7. FRAGMIN [Concomitant]
     Indication: DRUG USE FOR UNKNOWN INDICATION
  8. EUSAPRIM [Concomitant]
     Indication: DRUG USE FOR UNKNOWN INDICATION
  9. EMGESAN [Concomitant]
     Indication: DRUG USE FOR UNKNOWN INDICATION
  10. NEUPOGEN [Concomitant]
     Indication: DRUG USE FOR UNKNOWN INDICATION
  11. LORABID [Concomitant]
     Indication: DRUG USE FOR UNKNOWN INDICATION
  12. GRANOCYTE [Concomitant]
     Indication: DRUG USE FOR UNKNOWN INDICATION
  13. GEAVIR [Concomitant]
     Indication: DRUG USE FOR UNKNOWN INDICATION
  14. PANTOPRAZOLE SODIUM [Concomitant]
     Indication: DRUG USE FOR UNKNOWN INDICATION

REACTIONS (1)
  - HEARING IMPAIRED [None]
